FAERS Safety Report 5021762-9 (Version None)
Quarter: 2006Q2

REPORT INFORMATION
  Report Type: 
  Country: None (occurrence: None)
  Receive Date: 20060605
  Receipt Date: 20060523
  Transmission Date: 20061013
  Serious: Yes (Death, Hospitalization)
  Sender: FDA-Public Use
  Company Number: 2005123889

PATIENT
  Age: 49 Year
  Sex: Male
  Weight: 127.0072 kg

DRUGS (2)
  1. BEXTRA [Suspect]
     Indication: ANALGESIC EFFECT
     Dosage: 10 MG (10 MG, 1 IN 1 D)
     Dates: start: 20040223, end: 20050618
  2. BEXTRA [Suspect]
     Indication: ARTHRITIS
     Dosage: 10 MG (10 MG, 1 IN 1 D)
     Dates: start: 20040223, end: 20050618

REACTIONS (3)
  - BRAIN DAMAGE [None]
  - CEREBROVASCULAR ACCIDENT [None]
  - MYOCARDIAL INFARCTION [None]
